FAERS Safety Report 13616651 (Version 1)
Quarter: 2017Q2

REPORT INFORMATION
  Report Type: Spontaneous
  Country: US (occurrence: US)
  Receive Date: 20170606
  Receipt Date: 20170606
  Transmission Date: 20170830
  Serious: No
  Sender: FDA-Public Use
  Company Number: US-SA-2016SA104414

PATIENT
  Sex: Female

DRUGS (2)
  1. HUMALOG [Concomitant]
     Active Substance: INSULIN LISPRO
  2. LANTUS [Suspect]
     Active Substance: INSULIN GLARGINE
     Route: 065

REACTIONS (5)
  - Spondylitis [Unknown]
  - Back injury [Unknown]
  - Back disorder [Not Recovered/Not Resolved]
  - Insomnia [Unknown]
  - Fall [Unknown]
